FAERS Safety Report 5345698-9 (Version None)
Quarter: 2007Q2

REPORT INFORMATION
  Report Type: 
  Country: None (occurrence: None)
  Receive Date: 20070425
  Receipt Date: 20070216
  Transmission Date: 20071010
  Serious: Yes (Other)
  Sender: FDA-Public Use
  Company Number: 2007-154697-NL

PATIENT
  Age: 57 Year
  Sex: Female

DRUGS (2)
  1. ZEMURON [Suspect]
     Indication: SURGERY
     Dates: start: 20070110
  2. SYNTHROID [Concomitant]

REACTIONS (1)
  - ANAPHYLACTIC SHOCK [None]
